FAERS Safety Report 8087168-3 (Version None)
Quarter: 2012Q1

REPORT INFORMATION
  Report Type: 
  Country: None (occurrence: None)
  Receive Date: 20120128
  Receipt Date: 20110419
  Transmission Date: 20120608
  Serious: No
  Sender: FDA-Public Use
  Company Number: US-ABBOTT-11P-163-0719489-00

PATIENT
  Sex: Female
  Weight: 131.21 kg

DRUGS (7)
  1. BYETTA [Concomitant]
     Indication: DIABETES MELLITUS
  2. HYDROCHLOROTHIAZIDE [Concomitant]
     Indication: HYPERTENSION
  3. HUMIRA [Suspect]
     Indication: PSORIATIC ARTHROPATHY
     Dates: start: 20080101
  4. HUMIRA [Suspect]
     Indication: PSORIASIS
  5. ATENOLOL [Concomitant]
     Indication: HYPERTENSION
  6. METFFORMIN HYDROCHLORIDE [Concomitant]
     Indication: DIABETES MELLITUS
  7. DIOVAN [Concomitant]
     Indication: HYPERTENSION

REACTIONS (2)
  - PRURITUS [None]
  - PSORIASIS [None]
